FAERS Safety Report 25375100 (Version 1)
Quarter: 2025Q2

REPORT INFORMATION
  Report Type: Spontaneous
  Country: US (occurrence: None)
  Receive Date: 20250529
  Receipt Date: 20250529
  Transmission Date: 20250717
  Serious: Yes (unspecified)
  Sender: FDA-CTU
  Company Number: None

PATIENT
  Age: 62 Year
  Sex: Female
  Weight: 44.1 kg

DRUGS (3)
  1. GEMZAR [Suspect]
     Active Substance: GEMCITABINE HYDROCHLORIDE
     Indication: Ovarian cancer
     Dates: start: 20250422, end: 20250528
  2. VITAMIN C [Concomitant]
     Active Substance: ASCORBIC ACID
  3. D Curcumin [Concomitant]

REACTIONS (5)
  - Musculoskeletal chest pain [None]
  - Back pain [None]
  - Monoplegia [None]
  - Chondropathy [None]
  - Pain [None]

NARRATIVE: CASE EVENT DATE: 20250527
